FAERS Safety Report 21921199 (Version 2)
Quarter: 2023Q2

REPORT INFORMATION
  Report Type: Spontaneous
  Country: US (occurrence: US)
  Receive Date: 20230127
  Receipt Date: 20230403
  Transmission Date: 20230722
  Serious: No
  Sender: FDA-Public Use
  Company Number: US-AMGEN-USASP2022224978

PATIENT
  Sex: Male

DRUGS (2)
  1. KANJINTI [Suspect]
     Active Substance: TRASTUZUMAB-ANNS
     Indication: Product used for unknown indication
     Dosage: 150 MILLIGRAM. UNK
     Route: 065
  2. KANJINTI [Suspect]
     Active Substance: TRASTUZUMAB-ANNS
     Dosage: 150 MILLIGRAM, UNK
     Route: 065

REACTIONS (2)
  - Accidental exposure to product [Unknown]
  - Device dispensing error [Unknown]

NARRATIVE: CASE EVENT DATE: 20221229
